FAERS Safety Report 9133899 (Version 2)
Quarter: 2013Q1

REPORT INFORMATION
  Report Type: Spontaneous
  Country: CA (occurrence: CA)
  Receive Date: 20130303
  Receipt Date: 20130328
  Transmission Date: 20140127
  Serious: Yes (Hospitalization)
  Sender: FDA-Public Use
  Company Number: CA-BRISTOL-MYERS SQUIBB COMPANY-17409301

PATIENT
  Age: 55 Year
  Sex: Female

DRUGS (1)
  1. SPRYCEL [Suspect]
     Indication: CHRONIC MYELOID LEUKAEMIA
     Route: 048
     Dates: start: 20111010

REACTIONS (4)
  - Skin cancer [Unknown]
  - Localised infection [Unknown]
  - Blood cholesterol increased [Unknown]
  - Diarrhoea [Unknown]
